FAERS Safety Report 4309968-5 (Version None)
Quarter: 2004Q1

REPORT INFORMATION
  Report Type: 
  Country: None (occurrence: None)
  Receive Date: 20040227
  Receipt Date: 20031111
  Transmission Date: 20041129
  Serious: No
  Sender: FDA-Public Use
  Company Number: FABR-10367

PATIENT
  Age: 18 Year
  Sex: Male
  Weight: 75.5 kg

DRUGS (3)
  1. FABRAZYME [Suspect]
     Indication: FABRY'S DISEASE
     Dosage: 70 MG IV
     Route: 042
     Dates: start: 20030825
  2. BENADRYL [Concomitant]
  3. TYLENOL (CAPLET) [Concomitant]

REACTIONS (4)
  - ERYTHEMA [None]
  - PARAESTHESIA [None]
  - THROAT TIGHTNESS [None]
  - URTICARIA [None]
